FAERS Safety Report 12854816 (Version 1)
Quarter: 2016Q4

REPORT INFORMATION
  Report Type: Report from Study
  Country: None (occurrence: DE)
  Receive Date: 20161017
  Receipt Date: 20161017
  Transmission Date: 20170207
  Serious: Yes (Hospitalization)
  Sender: FDA-Public Use
  Company Number: DE-ABBVIE-16P-062-1754270-00

PATIENT
  Age: 35 Year
  Sex: Female

DRUGS (7)
  1. MESALAMINE. [Concomitant]
     Active Substance: MESALAMINE
     Route: 048
     Dates: start: 20160510
  2. CORTIMENT [Concomitant]
     Indication: COLITIS ULCERATIVE
     Route: 048
     Dates: start: 20160531
  3. SALOFALK [Concomitant]
     Active Substance: MESALAMINE
     Indication: COLITIS ULCERATIVE
     Route: 054
     Dates: start: 20160531
  4. HUMIRA [Suspect]
     Active Substance: ADALIMUMAB
     Route: 058
     Dates: start: 20150531, end: 20150919
  5. HUMIRA [Suspect]
     Active Substance: ADALIMUMAB
     Indication: COLITIS ULCERATIVE
     Route: 058
     Dates: start: 20140324
  6. MESALAMINE. [Concomitant]
     Active Substance: MESALAMINE
     Indication: COLITIS ULCERATIVE
     Route: 048
     Dates: start: 20100621, end: 20160509
  7. ENTOCORT [Concomitant]
     Active Substance: BUDESONIDE
     Indication: COLITIS ULCERATIVE
     Route: 054
     Dates: start: 20160531

REACTIONS (5)
  - Asthenia [Recovered/Resolved]
  - Circulatory collapse [Recovered/Resolved]
  - Nasopharyngitis [Recovered/Resolved]
  - Headache [Recovered/Resolved]
  - Oropharyngeal pain [Recovered/Resolved]

NARRATIVE: CASE EVENT DATE: 20160911
